FAERS Safety Report 8436551-2 (Version None)
Quarter: 2012Q2

REPORT INFORMATION
  Report Type: 
  Country: None (occurrence: None)
  Receive Date: 20120607
  Receipt Date: 20120607
  Transmission Date: 20120825
  Serious: Yes (Hospitalization)
  Sender: FDA-Public Use
  Company Number: None

PATIENT
  Sex: Female
  Weight: 53.6 kg

DRUGS (1)
  1. CRESTOR [Suspect]
     Indication: BLOOD CHOLESTEROL INCREASED
     Dosage: CRESTOR, 2.5MG ONCE/DAY ORAL
     Route: 048
     Dates: start: 20120101, end: 20120214

REACTIONS (2)
  - DYSPNOEA [None]
  - CHEST PAIN [None]
